FAERS Safety Report 18213741 (Version 2)
Quarter: 2020Q3

REPORT INFORMATION
  Report Type: Spontaneous
  Country: CO (occurrence: CO)
  Receive Date: 20200831
  Receipt Date: 20200930
  Transmission Date: 20201103
  Serious: Yes (Hospitalization, Disabling, Other)
  Sender: FDA-Public Use
  Company Number: CO-009507513-2008COL013129

PATIENT
  Age: 72 Year
  Sex: Male

DRUGS (1)
  1. VYTORIN [Suspect]
     Active Substance: EZETIMIBE\SIMVASTATIN
     Indication: BLOOD CHOLESTEROL ABNORMAL
     Dosage: UNK
     Route: 048
     Dates: start: 200606, end: 200705

REACTIONS (13)
  - Allergy to chemicals [Unknown]
  - General physical health deterioration [Not Recovered/Not Resolved]
  - Peripheral swelling [Unknown]
  - Swelling face [Unknown]
  - Arrhythmia [Unknown]
  - Thrombosis [Recovered/Resolved]
  - Blood glucose increased [Unknown]
  - Arthralgia [Unknown]
  - Ill-defined disorder [Unknown]
  - Joint swelling [Unknown]
  - Myocardial infarction [Unknown]
  - Genital swelling [Unknown]
  - Reaction to food additive [Unknown]

NARRATIVE: CASE EVENT DATE: 2020
